FAERS Safety Report 16279207 (Version 4)
Quarter: 2021Q3

REPORT INFORMATION
  Report Type: Report from Study
  Country: US (occurrence: US)
  Receive Date: 20190506
  Receipt Date: 20210907
  Transmission Date: 20211014
  Serious: Yes (Other)
  Sender: FDA-Public Use
  Company Number: US-AMGEN-USASP2019069653

PATIENT
  Age: 66 Year
  Sex: Female

DRUGS (2)
  1. LOSARTAN. [Concomitant]
     Active Substance: LOSARTAN
  2. REPATHA [Suspect]
     Active Substance: EVOLOCUMAB
     Indication: BLOOD CHOLESTEROL INCREASED
     Dosage: 140 MILLIGRAM, Q2WK
     Route: 065
     Dates: start: 201901, end: 2021

REACTIONS (10)
  - Sinus disorder [Unknown]
  - Blood creatinine increased [Unknown]
  - Arrhythmia [Unknown]
  - Depression [Unknown]
  - Dehydration [Recovering/Resolving]
  - Dizziness [Unknown]
  - Paranasal sinus hypersecretion [Unknown]
  - Coronary artery disease [Unknown]
  - Influenza [Recovered/Resolved]
  - Hypotension [Unknown]

NARRATIVE: CASE EVENT DATE: 2019
